FAERS Safety Report 15534517 (Version 1)
Quarter: 2018Q4

REPORT INFORMATION
  Report Type: Spontaneous
  Country: US (occurrence: US)
  Receive Date: 20181022
  Receipt Date: 20181022
  Transmission Date: 20190205
  Serious: No
  Sender: FDA-Public Use
  Company Number: US-DRREDDYS-USA/USA/18/0103080

PATIENT
  Age: 82 Year
  Sex: Female
  Weight: 56.36 kg

DRUGS (1)
  1. RANITIDINE. [Suspect]
     Active Substance: RANITIDINE
     Indication: ABDOMINAL PAIN UPPER
     Route: 048
     Dates: start: 20180807

REACTIONS (5)
  - Lethargy [Unknown]
  - Fatigue [Unknown]
  - Rhinorrhoea [Unknown]
  - Headache [Unknown]
  - Drug ineffective [Unknown]
